FAERS Safety Report 8170061-5 (Version None)
Quarter: 2012Q1

REPORT INFORMATION
  Report Type: 
  Country: None (occurrence: None)
  Receive Date: 20120106
  Receipt Date: 20110110
  Transmission Date: 20120608
  Serious: Yes (Other)
  Sender: FDA-Public Use
  Company Number: 20110023

PATIENT
  Age: 74 Year
  Sex: Male
  Weight: 102.3 kg

DRUGS (1)
  1. VENOFER [Suspect]
     Indication: RENAL FAILURE CHRONIC
     Dosage: 200 MG INTRAVENOUS
     Route: 042
     Dates: start: 20101201

REACTIONS (2)
  - RASH [None]
  - PRURITUS [None]
